FAERS Safety Report 4299876-0 (Version None)
Quarter: 2004Q1

REPORT INFORMATION
  Report Type: 
  Country: None (occurrence: None)
  Receive Date: 20040217
  Receipt Date: 20030807
  Transmission Date: 20041129
  Serious: Yes (Hospitalization, Disabling)
  Sender: FDA-Public Use
  Company Number: NSADSS2003016164

PATIENT
  Age: 78 Year
  Sex: Female

DRUGS (7)
  1. DONEPEZIL HCL [Suspect]
     Indication: DEMENTIA ALZHEIMER'S TYPE
     Dosage: 10 MG ORAL
     Route: 048
     Dates: start: 20020822, end: 20030407
  2. TOPROL (METOPROLOL SUCCINATE) [Concomitant]
  3. FOLIC ACID [Concomitant]
  4. VITAMIN B6 [Concomitant]
  5. VITAMIN B12 [Concomitant]
  6. GLUCOSAMINE (GLUCOSAMINE) [Concomitant]
  7. CENTRUM SILVER (CENTRUM SILVER) [Concomitant]

REACTIONS (5)
  - ABDOMINAL DISTENSION [None]
  - HAEMATOCHEZIA [None]
  - INTESTINAL POLYP [None]
  - LIVER DISORDER [None]
  - TREATMENT NONCOMPLIANCE [None]
